FAERS Safety Report 7905976-3 (Version None)
Quarter: 2011Q4

REPORT INFORMATION
  Report Type: 
  Country: None (occurrence: None)
  Receive Date: 20111109
  Receipt Date: 20111109
  Transmission Date: 20120403
  Serious: No
  Sender: FDA-Public Use
  Company Number: None

PATIENT
  Sex: Male
  Weight: 90.7194 kg

DRUGS (6)
  1. COLCRYS [Suspect]
     Indication: PAIN
     Dosage: 0.6 MG 2/DAY ORAL
     Route: 048
     Dates: start: 20110804, end: 20110823
  2. COLCRYS [Suspect]
     Indication: PAIN IN EXTREMITY
     Dosage: 0.6 MG 2/DAY ORAL
     Route: 048
     Dates: start: 20110804, end: 20110823
  3. COLCRYS [Suspect]
     Indication: PAIN
     Dosage: 0.6 MG 2/DAY ORAL
     Route: 048
     Dates: start: 20110828
  4. COLCRYS [Suspect]
     Indication: PAIN IN EXTREMITY
     Dosage: 0.6 MG 2/DAY ORAL
     Route: 048
     Dates: start: 20110828
  5. COLCRYS [Suspect]
     Indication: PAIN
     Dosage: 0.6 MG 2/DAY ORAL
     Route: 048
     Dates: start: 20110815
  6. COLCRYS [Suspect]
     Indication: PAIN IN EXTREMITY
     Dosage: 0.6 MG 2/DAY ORAL
     Route: 048
     Dates: start: 20110815

REACTIONS (3)
  - PAIN [None]
  - SWELLING [None]
  - PRODUCT QUALITY ISSUE [None]
